FAERS Safety Report 6085300-4 (Version None)
Quarter: 2009Q1

REPORT INFORMATION
  Report Type: 
  Country: None (occurrence: None)
  Receive Date: 20090218
  Receipt Date: 20090203
  Transmission Date: 20090719
  Serious: Yes (Disabling)
  Sender: FDA-Public Use
  Company Number: 2009PV000005

PATIENT
  Age: 40 Year
  Sex: Female

DRUGS (2)
  1. CYTARABINE [Suspect]
     Indication: BURKITT'S LYMPHOMA
     Dosage: 50 MG; 2X; INTH
     Route: 039
     Dates: start: 20080407, end: 20080430
  2. LEVOTHYROXINE SODIUM [Concomitant]

REACTIONS (6)
  - BACK PAIN [None]
  - HYPOAESTHESIA [None]
  - MUSCULAR WEAKNESS [None]
  - NEUROTOXICITY [None]
  - PAIN IN EXTREMITY [None]
  - TREMOR [None]
